FAERS Safety Report 13142831 (Version 1)
Quarter: 2017Q1

REPORT INFORMATION
  Report Type: Spontaneous
  Country: US (occurrence: US)
  Receive Date: 20170123
  Receipt Date: 20170123
  Transmission Date: 20170428
  Serious: No
  Sender: FDA-Public Use
  Company Number: None

PATIENT
  Sex: Female

DRUGS (2)
  1. DETROL LA [Suspect]
     Active Substance: TOLTERODINE TARTRATE
     Indication: HYPERTONIC BLADDER
     Route: 048
     Dates: start: 201611, end: 20161206
  2. DITROPAN XL [Suspect]
     Active Substance: OXYBUTYNIN CHLORIDE
     Route: 048
     Dates: start: 201610, end: 201611

REACTIONS (5)
  - Dry mouth [None]
  - Dry eye [None]
  - Constipation [None]
  - Dysuria [None]
  - Dry skin [None]
